FAERS Safety Report 7339148-0 (Version None)
Quarter: 2011Q1

REPORT INFORMATION
  Report Type: 
  Country: None (occurrence: None)
  Receive Date: 20110308
  Receipt Date: 20110223
  Transmission Date: 20110831
  Serious: Yes (Other)
  Sender: FDA-Public Use
  Company Number: PHHY2011ES15256

PATIENT
  Sex: Female

DRUGS (2)
  1. CERTICAN [Suspect]
  2. AFINITOR [Concomitant]
     Dosage: UNK
     Dates: start: 20101201

REACTIONS (3)
  - MUCOSAL INFLAMMATION [None]
  - DRUG DISPENSING ERROR [None]
  - PNEUMONITIS [None]
